FAERS Safety Report 15570552 (Version 3)
Quarter: 2019Q2

REPORT INFORMATION
  Report Type: Spontaneous
  Country: CA (occurrence: CA)
  Receive Date: 20181031
  Receipt Date: 20190408
  Transmission Date: 20190711
  Serious: Yes (Other)
  Sender: FDA-Public Use
  Company Number: CA-MALLINCKRODT-T201804680

PATIENT
  Age: 52 Year
  Sex: Female

DRUGS (2)
  1. METHADOSE [Suspect]
     Active Substance: METHADONE HYDROCHLORIDE
     Indication: PRODUCT USED FOR UNKNOWN INDICATION
     Dosage: UNK
     Route: 065
  2. HUMIRA [Suspect]
     Active Substance: ADALIMUMAB
     Indication: RHEUMATOID ARTHRITIS
     Dosage: 40 MG, 1 EVERY 2 WEEK(S)
     Route: 058
     Dates: start: 20180131

REACTIONS (10)
  - Seizure [Unknown]
  - Skin mass [Recovering/Resolving]
  - Gait inability [Not Recovered/Not Resolved]
  - Nasopharyngitis [Not Recovered/Not Resolved]
  - Pain in extremity [Recovering/Resolving]
  - Balance disorder [Recovered/Resolved]
  - Drug intolerance [Not Recovered/Not Resolved]
  - Hypoaesthesia [Recovering/Resolving]
  - Joint range of motion decreased [Not Recovered/Not Resolved]
  - Fall [Recovered/Resolved]

NARRATIVE: CASE EVENT DATE: 2018
